FAERS Safety Report 16942477 (Version 2)
Quarter: 2020Q3

REPORT INFORMATION
  Report Type: Report from Study
  Country: IT (occurrence: IT)
  Receive Date: 20191021
  Receipt Date: 20191125
  Transmission Date: 20201104
  Serious: Yes (Hospitalization)
  Sender: FDA-Public Use
  Company Number: NVSC2019IT006044

PATIENT
  Age: 56 Year
  Sex: Female

DRUGS (3)
  1. EGF816 [Suspect]
     Active Substance: NAZARTINIB
     Indication: NON-SMALL CELL LUNG CANCER
     Dosage: 100 MG, QD
     Route: 048
     Dates: start: 20190125
  2. TRAMETINIB [Suspect]
     Active Substance: TRAMETINIB
     Indication: NON-SMALL CELL LUNG CANCER
     Dosage: 0.5 MG, QD
     Route: 048
     Dates: start: 20190712
  3. EGF816 [Suspect]
     Active Substance: NAZARTINIB
     Dosage: 100 MG, QD
     Route: 048
     Dates: start: 20191030

REACTIONS (1)
  - Diarrhoea [Recovered/Resolved]

NARRATIVE: CASE EVENT DATE: 20191008
